FAERS Safety Report 4883646-6 (Version None)
Quarter: 2006Q1

REPORT INFORMATION
  Report Type: 
  Country: None (occurrence: None)
  Receive Date: 20060113
  Receipt Date: 20051227
  Transmission Date: 20060701
  Serious: Yes (Hospitalization, Other)
  Sender: FDA-Public Use
  Company Number: US200512004316

PATIENT
  Age: 46 Year
  Sex: Female

DRUGS (6)
  1. FORTEO [Suspect]
     Dosage: 20 UG, 2/D
     Dates: start: 20050501, end: 20050901
  2. FORTEO PEN (FORTEO PEN) PEN DISPOSABLE [Concomitant]
  3. ROCALTROL [Concomitant]
  4. CALCIUM CARBONATE (CALCIUM CARBONATE) [Concomitant]
  5. CALCIUM GLUCONATE [Concomitant]
  6. MAGNESIUM SULFATE [Concomitant]

REACTIONS (5)
  - BLOOD MAGNESIUM DECREASED [None]
  - BLOOD POTASSIUM DECREASED [None]
  - HYPERCALCAEMIA [None]
  - HYPOCALCAEMIA [None]
  - PRESCRIBED OVERDOSE [None]
